FAERS Safety Report 17423432 (Version 2)
Quarter: 2020Q3

REPORT INFORMATION
  Report Type: Other
  Country: US (occurrence: US)
  Receive Date: 20200217
  Receipt Date: 20200819
  Transmission Date: 20201102
  Serious: Yes (Other)
  Sender: FDA-Public Use
  Company Number: US-ROCHE-2550249

PATIENT
  Age: 63 Year
  Sex: Female
  Weight: 53.57 kg

DRUGS (7)
  1. OCREVUS [Suspect]
     Active Substance: OCRELIZUMAB
     Indication: RELAPSING MULTIPLE SCLEROSIS
     Route: 042
     Dates: start: 20180904
  2. VALACYCLOVIR [Concomitant]
     Active Substance: VALACYCLOVIR HYDROCHLORIDE
     Route: 048
  3. OCREVUS [Suspect]
     Active Substance: OCRELIZUMAB
     Route: 042
     Dates: start: 201809
  4. DUREZOL [Concomitant]
     Active Substance: DIFLUPREDNATE
     Indication: UVEITIS
     Dosage: LEFT EYE
     Route: 031
  5. GABAPENTIN. [Concomitant]
     Active Substance: GABAPENTIN
     Dosage: AT BEDTIME
     Route: 042
  6. TOLTERODINE [Concomitant]
     Active Substance: TOLTERODINE
     Indication: INCONTINENCE
     Route: 048
  7. TIMOLOL. [Concomitant]
     Active Substance: TIMOLOL
     Indication: UVEITIS
     Dosage: BOTH EYES
     Route: 031

REACTIONS (7)
  - Fall [Unknown]
  - Bone fragmentation [Recovered/Resolved]
  - Blindness unilateral [Unknown]
  - Herpes zoster [Recovered/Resolved]
  - Migraine [Not Recovered/Not Resolved]
  - Pain [Recovered/Resolved]
  - Eye haemorrhage [Not Recovered/Not Resolved]

NARRATIVE: CASE EVENT DATE: 201809
